FAERS Safety Report 8265924-6 (Version None)
Quarter: 2012Q2

REPORT INFORMATION
  Report Type: 
  Country: None (occurrence: None)
  Receive Date: 20120403
  Receipt Date: 20120322
  Transmission Date: 20120825
  Serious: Yes (Life-Threatening)
  Sender: FDA-Public Use
  Company Number: 2012-00548

PATIENT
  Age: 12 Year
  Sex: Male
  Weight: 40 kg

DRUGS (1)
  1. CEFTRIAXONE [Suspect]
     Indication: MENINGITIS
     Dosage: 3.2 MG, UNK, INTRAVENOUS
     Route: 042
     Dates: start: 20120308, end: 20120308

REACTIONS (2)
  - SWOLLEN TONGUE [None]
  - URTICARIA [None]
